FAERS Safety Report 8369930-2 (Version None)
Quarter: 2012Q1

REPORT INFORMATION
  Report Type: 
  Country: None (occurrence: None)
  Receive Date: 20120323
  Receipt Date: 20111213
  Transmission Date: 20120608
  Serious: Yes (Other)
  Sender: FDA-Public Use
  Company Number: 163-21880-11113154

PATIENT
  Age: 88 Year
  Sex: Female

DRUGS (11)
  1. REVLIMID [Suspect]
     Indication: 5Q MINUS SYNDROME
     Dosage: 10 MG, 1 IN 1 D, PO; 10 MG, 1 IN 1 D, PO
     Route: 048
     Dates: start: 20100901
  2. REVLIMID [Suspect]
     Indication: 5Q MINUS SYNDROME
     Dosage: 10 MG, 1 IN 1 D, PO; 10 MG, 1 IN 1 D, PO
     Route: 048
     Dates: start: 20111010, end: 20111122
  3. FUROSEMIDE [Concomitant]
  4. IBUPROFEN [Concomitant]
  5. CHOLECALCIFEROL [Concomitant]
  6. CRANBERRY EXTRACT (AZO CRANBERRY) [Concomitant]
  7. METOPROLOL [Concomitant]
  8. NITROFURANTOIN [Concomitant]
  9. ASPIRIN [Concomitant]
  10. RAMIPRIL [Concomitant]
  11. METHIMAZOLE [Concomitant]

REACTIONS (1)
  - NEUTROPENIA [None]
